FAERS Safety Report 11308176 (Version 1)
Quarter: 2015Q3

REPORT INFORMATION
  Report Type: Spontaneous
  Country: US (occurrence: US)
  Receive Date: 20150724
  Receipt Date: 20150724
  Transmission Date: 20151125
  Serious: Yes (Other)
  Sender: FDA-Public Use
  Company Number: US-ROCHE-1611459

PATIENT
  Age: 51 Year

DRUGS (4)
  1. IRINOTECAN [Suspect]
     Active Substance: IRINOTECAN
     Indication: COLON CANCER
     Route: 065
  2. FOLINIC ACID [Suspect]
     Active Substance: LEUCOVORIN
     Indication: COLON CANCER
     Route: 065
  3. FLUOROURACIL. [Suspect]
     Active Substance: FLUOROURACIL
     Indication: COLON CANCER
     Route: 065
  4. AVASTIN [Suspect]
     Active Substance: BEVACIZUMAB
     Indication: COLON CANCER
     Route: 065

REACTIONS (1)
  - Intestinal obstruction [Unknown]
